FAERS Safety Report 7759187-5 (Version None)
Quarter: 2011Q3

REPORT INFORMATION
  Report Type: 
  Country: None (occurrence: None)
  Receive Date: 20110919
  Receipt Date: 20110913
  Transmission Date: 20111222
  Serious: Yes (Other)
  Sender: FDA-Public Use
  Company Number: CN-SANOFI-AVENTIS-2011SA058357

PATIENT
  Age: 78 Year
  Sex: Female
  Weight: 55 kg

DRUGS (2)
  1. LANTUS [Suspect]
     Indication: DIABETES MELLITUS
     Route: 058
     Dates: start: 20090101
  2. ALL OTHER THERAPEUTIC PRODUCTS [Concomitant]
     Dates: start: 20110401

REACTIONS (2)
  - DECREASED APPETITE [None]
  - WEIGHT DECREASED [None]
